FAERS Safety Report 21917578 (Version 2)
Quarter: 2023Q1

REPORT INFORMATION
  Report Type: Spontaneous
  Country: RU (occurrence: RU)
  Receive Date: 20230127
  Receipt Date: 20230206
  Transmission Date: 20230418
  Serious: Yes (Other)
  Sender: FDA-Public Use
  Company Number: RU-BAYER-2023P004072

PATIENT
  Age: 72 Year
  Sex: Male

DRUGS (2)
  1. EYLEA [Suspect]
     Active Substance: AFLIBERCEPT
     Indication: Polypoidal choroidal vasculopathy
     Dosage: 3 LOADING INJECTIONS, 1 MONTH APART, OD, SOLUTION FOR INJECTION
     Route: 031
     Dates: start: 202102, end: 202104
  2. EYLEA [Suspect]
     Active Substance: AFLIBERCEPT
     Indication: Neovascular age-related macular degeneration
     Dosage: 2 INJECTIONS, TREAT AND EXTEND REGIMEN, OD, TOTAL OF 2 INJECTIONS, SOLUTION FOR INJECTION
     Route: 031
     Dates: start: 202105, end: 202107

REACTIONS (2)
  - Cataract [Unknown]
  - Detachment of retinal pigment epithelium [Unknown]

NARRATIVE: CASE EVENT DATE: 20210801
